FAERS Safety Report 23827693 (Version 2)
Quarter: 2024Q2

REPORT INFORMATION
  Report Type: Spontaneous
  Country: US (occurrence: None)
  Receive Date: 20240507
  Receipt Date: 20240606
  Transmission Date: 20240715
  Serious: Yes (Hospitalization, Other)
  Sender: FDA-Public Use
  Company Number: 2024A102152

PATIENT
  Sex: Female

DRUGS (2)
  1. SYMBICORT [Suspect]
     Active Substance: BUDESONIDE\FORMOTEROL FUMARATE DIHYDRATE
     Dosage: 160 UG TWO TIMES A DAY
     Route: 055
  2. ELIQUIS [Concomitant]
     Active Substance: APIXABAN

REACTIONS (10)
  - Fall [Unknown]
  - Multiple fractures [Unknown]
  - Head injury [Unknown]
  - Balance disorder [Unknown]
  - Asthenia [Unknown]
  - Overweight [Unknown]
  - Osteopenia [Unknown]
  - Gait disturbance [Unknown]
  - Pain [Unknown]
  - Decreased activity [Recovered/Resolved]
